APPROVED DRUG PRODUCT: TICAGRELOR
Active Ingredient: TICAGRELOR
Strength: 60MG
Dosage Form/Route: TABLET;ORAL
Application: A217679 | Product #001 | TE Code: AB
Applicant: MANKIND PHARMA LTD
Approved: Feb 6, 2026 | RLD: No | RS: No | Type: RX